FAERS Safety Report 13831106 (Version 2)
Quarter: 2017Q3

REPORT INFORMATION
  Report Type: Spontaneous
  Country: BR (occurrence: BR)
  Receive Date: 20170803
  Receipt Date: 20170815
  Transmission Date: 20171127
  Serious: Yes (Hospitalization)
  Sender: FDA-Public Use
  Company Number: BR-BRISTOL-MYERS SQUIBB COMPANY-BMS-2017-067623

PATIENT
  Sex: Female

DRUGS (1)
  1. NIVOLUMAB [Suspect]
     Active Substance: NIVOLUMAB
     Indication: LUNG NEOPLASM MALIGNANT
     Dosage: 231 MG, UNK
     Route: 042
     Dates: start: 20170530

REACTIONS (14)
  - Dysphonia [Unknown]
  - Decreased appetite [Unknown]
  - Chromaturia [Unknown]
  - Cough [Unknown]
  - Polyuria [Unknown]
  - Dizziness [Unknown]
  - Chest pain [Unknown]
  - Weight decreased [Unknown]
  - Visual impairment [Unknown]
  - Hypersomnia [Unknown]
  - Loss of personal independence in daily activities [Unknown]
  - Dyspnoea [Unknown]
  - Myalgia [Unknown]
  - Urine output decreased [Unknown]
